FAERS Safety Report 5207731-4 (Version None)
Quarter: 2006Q4

REPORT INFORMATION
  Report Type: 
  Country: None (occurrence: None)
  Receive Date: 20061030
  Receipt Date: 20060918
  Transmission Date: 20070319
  Serious: No
  Sender: FDA-Public Use
  Company Number: 2006CT000731

PATIENT
  Age: 48 Year
  Sex: Female
  Weight: 83.9154 kg

DRUGS (7)
  1. VENTAVIS [Suspect]
     Indication: PULMONARY HYPERTENSION
     Dosage: 2.5 UG; 6XD; INH
     Route: 055
     Dates: start: 20060913, end: 20060918
  2. EFFEXOR [Concomitant]
  3. REMERON [Concomitant]
  4. SYNTHROID [Concomitant]
  5. PRAVACHOL [Concomitant]
  6. NADOLOL [Concomitant]
  7. ASPIRIN [Concomitant]

REACTIONS (4)
  - ABDOMINAL PAIN UPPER [None]
  - DIARRHOEA [None]
  - DIZZINESS [None]
  - NAUSEA [None]
